FAERS Safety Report 11287109 (Version 1)
Quarter: 2015Q3

REPORT INFORMATION
  Report Type: Spontaneous
  Country: US (occurrence: US)
  Receive Date: 20150721
  Receipt Date: 20150721
  Transmission Date: 20151125
  Serious: No
  Sender: FDA-Public Use
  Company Number: US-TEVA-579387USA

PATIENT
  Sex: Female

DRUGS (2)
  1. L DOPA [Concomitant]
     Active Substance: LEVODOPA
  2. AZILECT [Suspect]
     Active Substance: RASAGILINE MESYLATE
     Indication: PRODUCT USED FOR UNKNOWN INDICATION
     Route: 065

REACTIONS (3)
  - Drug dispensing error [Unknown]
  - Feeling abnormal [Unknown]
  - Drug dose omission [Unknown]
